FAERS Safety Report 13272624 (Version 1)
Quarter: 2017Q1

REPORT INFORMATION
  Report Type: Spontaneous
  Country: US (occurrence: US)
  Receive Date: 20170226
  Receipt Date: 20170226
  Transmission Date: 20170428
  Serious: Yes (Disabling)
  Sender: FDA-Public Use
  Company Number: None

PATIENT
  Age: 60 Year
  Sex: Female
  Weight: 63 kg

DRUGS (5)
  1. VITAMIN D [Concomitant]
     Active Substance: CHOLECALCIFEROL
  2. METHOCARBAMOL. [Concomitant]
     Active Substance: METHOCARBAMOL
  3. BELBUCA [Suspect]
     Active Substance: BUPRENORPHINE HYDROCHLORIDE
     Indication: PAIN
     Dosage: ?          OTHER STRENGTH:MCG;QUANTITY:1 PATCH(ES);?
     Route: 048
  4. ADVAIR HFA [Concomitant]
     Active Substance: FLUTICASONE PROPIONATE\SALMETEROL XINAFOATE
  5. TRAMADOL. [Concomitant]
     Active Substance: TRAMADOL

REACTIONS (7)
  - Eye pruritus [None]
  - Dry eye [None]
  - Eye pain [None]
  - Vision blurred [None]
  - Eye irritation [None]
  - Photophobia [None]
  - Skin abrasion [None]

NARRATIVE: CASE EVENT DATE: 20170220
